FAERS Safety Report 9749589 (Version 1)
Quarter: 2013Q4

REPORT INFORMATION
  Report Type: Spontaneous
  Country: BR (occurrence: None)
  Receive Date: 20131209
  Receipt Date: 20131209
  Transmission Date: 20140711
  Serious: Yes (Other)
  Sender: FDA-Public Use
  Company Number: SYM-2013-13563

PATIENT
  Age: 65 Year
  Sex: Male

DRUGS (1)
  1. FLAGYL [Suspect]
     Indication: DIARRHOEA
     Dosage: 2 IN 1 D
     Route: 048
     Dates: start: 201311

REACTIONS (1)
  - Platelet count decreased [None]
